FAERS Safety Report 6922515-4 (Version None)
Quarter: 2010Q3

REPORT INFORMATION
  Report Type: 
  Country: None (occurrence: None)
  Receive Date: 20100813
  Receipt Date: 20100810
  Transmission Date: 20110219
  Serious: Yes (Other)
  Sender: FDA-Public Use
  Company Number: GB-JNJFOC-20100303012

PATIENT
  Age: 10 Year
  Sex: Male

DRUGS (2)
  1. OXYBUTYNIN [Suspect]
     Indication: ENURESIS
     Route: 048
  2. DESMOPRESSIN ACETATE [Concomitant]
     Route: 048

REACTIONS (1)
  - MUSCLE SPASMS [None]
